FAERS Safety Report 8842892 (Version 1)
Quarter: 2012Q4

REPORT INFORMATION
  Report Type: 
  Country: US (occurrence: US)
  Receive Date: 20121016
  Receipt Date: 20121016
  Transmission Date: 20130627
  Serious: Yes (Other)
  Sender: FDA-Public Use
  Company Number: US-TEVA-364179USA

PATIENT
  Sex: Female

DRUGS (1)
  1. COPAXONE [Suspect]
     Indication: MULTIPLE SCLEROSIS
     Dates: start: 20100430

REACTIONS (3)
  - Hypoaesthesia [Recovered/Resolved]
  - Immediate post-injection reaction [Recovered/Resolved]
  - Chills [Recovered/Resolved]
